FAERS Safety Report 7946621 (Version 4)
Quarter: 2023Q4

REPORT INFORMATION
  Report Type: Spontaneous
  Country: US (occurrence: US)
  Receive Date: 20110516
  Receipt Date: 20231202
  Transmission Date: 20240109
  Serious: Yes (Hospitalization)
  Sender: FDA-Public Use
  Company Number: US-BAYER-2011-041055

PATIENT
  Age: 24 Year
  Sex: Female
  Weight: 95.238 kg

DRUGS (4)
  1. YASMIN [Suspect]
     Active Substance: DROSPIRENONE\ETHINYL ESTRADIOL
     Indication: Contraception
     Dosage: UNK
     Dates: start: 20020414, end: 20041116
  2. GLUCOPHAGE [Concomitant]
     Active Substance: METFORMIN HYDROCHLORIDE
     Indication: Polycystic ovaries
     Dosage: 500 MG, QD
     Route: 048
     Dates: start: 2000
  3. METFORMIN [Concomitant]
     Active Substance: METFORMIN HYDROCHLORIDE
     Indication: Diabetes mellitus
     Dosage: UNK
     Dates: start: 2003, end: 2005
  4. PAXIL [Concomitant]
     Active Substance: PAROXETINE HYDROCHLORIDE
     Indication: Depression
     Dosage: 40 MG, QD
     Route: 048
     Dates: start: 20021014, end: 20050302

REACTIONS (10)
  - Pulmonary embolism [None]
  - Injury [None]
  - Pain [None]
  - Emotional distress [None]
  - Anxiety [None]
  - Dyspnoea [None]
  - Chest pain [None]
  - Dyspnoea [None]
  - Cough [None]
  - Throat tightness [None]

NARRATIVE: CASE EVENT DATE: 20041101
